FAERS Safety Report 9731911 (Version 41)
Quarter: 2017Q3

REPORT INFORMATION
  Report Type: Report from Study
  Country: CA (occurrence: CA)
  Receive Date: 20131205
  Receipt Date: 20170811
  Transmission Date: 20171128
  Serious: Yes (Other)
  Sender: FDA-Public Use
  Company Number: PHHY2013CA026823

PATIENT
  Age: 57 Year
  Sex: Female

DRUGS (12)
  1. SANDOSTATIN LAR DEPOT [Suspect]
     Active Substance: OCTREOTIDE ACETATE
     Indication: ACROMEGALY
     Dosage: 20 MG, QMO
     Route: 030
     Dates: start: 200206
  2. HARVONI [Concomitant]
     Active Substance: LEDIPASVIR\SOFOSBUVIR
     Dosage: 90 MG, QD
     Route: 048
     Dates: start: 20161205
  3. SANDOSTATIN LAR DEPOT [Suspect]
     Active Substance: OCTREOTIDE ACETATE
     Dosage: 20 MG, QMO (EVERY 4 WEEKS)
     Route: 030
     Dates: start: 20130214
  4. SANDOSTATIN LAR DEPOT [Suspect]
     Active Substance: OCTREOTIDE ACETATE
     Dosage: 20 MG, EVERY 3 WEEKS
     Route: 030
     Dates: start: 20130417
  5. RIBAVIRIN. [Concomitant]
     Active Substance: RIBAVIRIN
     Indication: PRODUCT USED FOR UNKNOWN INDICATION
     Route: 065
  6. SANDOSTATIN [Suspect]
     Active Substance: OCTREOTIDE ACETATE
     Indication: ACROMEGALY
     Dosage: 50 UG, BID
     Route: 058
  7. INTERFERON [Concomitant]
     Active Substance: INTERFERON
     Indication: PRODUCT USED FOR UNKNOWN INDICATION
     Route: 065
  8. SANDOSTATIN LAR DEPOT [Suspect]
     Active Substance: OCTREOTIDE ACETATE
     Dosage: 10 MG, EVERY 6 WEEKS
     Route: 030
     Dates: start: 20150710
  9. SANDOSTATIN [Suspect]
     Active Substance: OCTREOTIDE ACETATE
     Dosage: UNK, PRN
     Route: 058
     Dates: start: 201603
  10. TELAPREVIR [Concomitant]
     Active Substance: TELAPREVIR
     Indication: PRODUCT USED FOR UNKNOWN INDICATION
     Route: 065
  11. SANDOSTATIN LAR DEPOT [Suspect]
     Active Substance: OCTREOTIDE ACETATE
     Dosage: 10 MG, EVERY 3 WEEKS
     Route: 030
     Dates: start: 20131002
  12. HARVONI [Concomitant]
     Active Substance: LEDIPASVIR\SOFOSBUVIR
     Indication: PRODUCT USED FOR UNKNOWN INDICATION
     Dosage: 90 MG, QD
     Route: 048
     Dates: start: 201610

REACTIONS (55)
  - Cardiac disorder [Unknown]
  - Fungal infection [Unknown]
  - Extrasystoles [Unknown]
  - Headache [Not Recovered/Not Resolved]
  - Inappropriate schedule of drug administration [Unknown]
  - Sleep disorder [Unknown]
  - Malaise [Unknown]
  - Arthralgia [Unknown]
  - Fatigue [Unknown]
  - Blood bilirubin increased [Unknown]
  - Pneumonitis [Unknown]
  - Platelet count decreased [Not Recovered/Not Resolved]
  - Cough [Unknown]
  - Injection site pain [Unknown]
  - Nausea [Unknown]
  - Pulmonary thrombosis [Unknown]
  - Gait inability [Unknown]
  - Arrhythmia [Unknown]
  - Syncope [Unknown]
  - Swelling face [Unknown]
  - Heart rate decreased [Unknown]
  - Atrioventricular block [Recovering/Resolving]
  - Hepatitis C [Unknown]
  - Chest pain [Unknown]
  - Muscle spasms [Unknown]
  - Abdominal distension [Unknown]
  - Fluid retention [Unknown]
  - Pyrexia [Unknown]
  - Peripheral swelling [Unknown]
  - Migraine [Unknown]
  - Asthenia [Unknown]
  - Drug administration error [Unknown]
  - Angina pectoris [Unknown]
  - Neutrophil count decreased [Unknown]
  - Musculoskeletal discomfort [Unknown]
  - Blood glucose increased [Unknown]
  - Drug ineffective [Unknown]
  - Disease progression [Unknown]
  - Weight decreased [Unknown]
  - Epistaxis [Not Recovered/Not Resolved]
  - Breast pain [Recovered/Resolved]
  - Pain [Unknown]
  - Abdominal pain [Unknown]
  - Postoperative wound infection [Unknown]
  - Blood pressure increased [Recovering/Resolving]
  - White blood cell count decreased [Not Recovered/Not Resolved]
  - Lymphocyte count decreased [Unknown]
  - Mass [Unknown]
  - Pain in extremity [Unknown]
  - Back pain [Unknown]
  - Splenomegaly [Unknown]
  - Varices oesophageal [Unknown]
  - Dizziness [Not Recovered/Not Resolved]
  - Decreased appetite [Unknown]
  - Aspartate aminotransferase increased [Unknown]

NARRATIVE: CASE EVENT DATE: 2004
